FAERS Safety Report 7680956-4 (Version None)
Quarter: 2011Q3

REPORT INFORMATION
  Report Type: 
  Country: None (occurrence: None)
  Receive Date: 20110812
  Receipt Date: 20110728
  Transmission Date: 20111222
  Serious: Yes (Hospitalization)
  Sender: FDA-Public Use
  Company Number: HU-ELI_LILLY_AND_COMPANY-HU201108000806

PATIENT
  Sex: Male

DRUGS (3)
  1. CARBOPLATIN [Suspect]
     Indication: NON-SMALL CELL LUNG CANCER
     Dosage: 450 MG, ONCE EVERY THREE WEEKS
     Route: 042
     Dates: start: 20090903, end: 20091216
  2. GEMCITABINE HYDROCHLORIDE [Suspect]
     Indication: NON-SMALL CELL LUNG CANCER
     Dosage: 1800 MG, DAY 1 AND DAY 8 EVERY THREE WEEKS
     Route: 042
     Dates: start: 20090903, end: 20091216
  3. BEVACIZUMAB [Suspect]
     Indication: NON-SMALL CELL LUNG CANCER
     Dosage: 515 MG, EVERY THREE WEEKS
     Route: 042
     Dates: start: 20090903

REACTIONS (1)
  - EPISTAXIS [None]
